FAERS Safety Report 23825709 (Version 8)
Quarter: 2024Q4

REPORT INFORMATION
  Report Type: Spontaneous
  Country: US (occurrence: US)
  Receive Date: 20240507
  Receipt Date: 20241016
  Transmission Date: 20250115
  Serious: Yes (Other)
  Sender: PFIZER
  Company Number: US-PFIZER INC-PV202400058961

PATIENT
  Age: 71 Year
  Sex: Female
  Weight: 75.3 kg

DRUGS (3)
  1. IBRANCE [Suspect]
     Active Substance: PALBOCICLIB
     Indication: Breast cancer metastatic
     Dosage: 125 MG DAILY, ON DAYS 1 THROUGH 21 FOLLOWED BY 7 DAYS OFF EVERY 28 DAYS
     Route: 048
     Dates: start: 20240430
  2. IBRANCE [Suspect]
     Active Substance: PALBOCICLIB
     Dosage: 125 MG DAILY D1-21 Q 28
     Dates: start: 20240525
  3. ANASTROZOLE [Suspect]
     Active Substance: ANASTROZOLE
     Indication: Breast cancer metastatic
     Dosage: UNK, DAILY

REACTIONS (4)
  - Diabetes mellitus [Unknown]
  - Thrombocytopenia [Unknown]
  - Neutropenia [Unknown]
  - Dysphonia [Unknown]
